FAERS Safety Report 8450079-5 (Version None)
Quarter: 2012Q2

REPORT INFORMATION
  Report Type: 
  Country: None (occurrence: None)
  Receive Date: 20120620
  Receipt Date: 20120619
  Transmission Date: 20120825
  Serious: Yes (Other)
  Sender: FDA-Public Use
  Company Number: US-JNJFOC-20120503327

PATIENT
  Age: 51 Year
  Sex: Female
  Weight: 100.3 kg

DRUGS (2)
  1. EVITHROM [Suspect]
     Indication: HAEMOSTASIS
     Route: 061
     Dates: start: 20120213, end: 20120213
  2. LOCAL HAEMOSTATICS [Concomitant]
     Indication: HAEMOSTASIS
     Route: 061
     Dates: start: 20120213, end: 20120213

REACTIONS (3)
  - SCAB [None]
  - WOUND DEHISCENCE [None]
  - INCISION SITE ERYTHEMA [None]
